FAERS Safety Report 7271170-5 (Version None)
Quarter: 2011Q1

REPORT INFORMATION
  Report Type: 
  Country: None (occurrence: None)
  Receive Date: 20110202
  Receipt Date: 20110127
  Transmission Date: 20110831
  Serious: No
  Sender: FDA-Public Use
  Company Number: US-PFIZER INC-2011019782

PATIENT

DRUGS (2)
  1. LOPID [Suspect]
     Dosage: UNK
  2. LOVAZA [Concomitant]
     Dosage: UNK

REACTIONS (1)
  - HYPERSENSITIVITY [None]
